FAERS Safety Report 7238082-4 (Version None)
Quarter: 2011Q1

REPORT INFORMATION
  Report Type: 
  Country: None (occurrence: None)
  Receive Date: 20110121
  Receipt Date: 20110110
  Transmission Date: 20110831
  Serious: Yes (Hospitalization)
  Sender: FDA-Public Use
  Company Number: B0694151A

PATIENT
  Age: 38 Year
  Sex: Female

DRUGS (5)
  1. RISPERIDONE [Suspect]
     Route: 065
  2. PAROXETINE [Suspect]
     Dosage: 20MG IN THE MORNING
     Route: 065
  3. OLANZAPINE [Suspect]
     Dosage: 10MG AT NIGHT
     Route: 065
  4. BENZTROPINE MESYLATE [Concomitant]
     Route: 065
  5. LITHIUM CARBONATE [Concomitant]

REACTIONS (17)
  - PYREXIA [None]
  - HYPOKINESIA [None]
  - SALIVARY HYPERSECRETION [None]
  - MUSCLE CONTRACTIONS INVOLUNTARY [None]
  - GAIT DISTURBANCE [None]
  - TACHYCARDIA [None]
  - NAUSEA [None]
  - NEUROLEPTIC MALIGNANT SYNDROME [None]
  - TREMOR [None]
  - LIVER FUNCTION TEST ABNORMAL [None]
  - DYSPHAGIA [None]
  - HYPERHIDROSIS [None]
  - FALL [None]
  - MUSCLE RIGIDITY [None]
  - SPEECH DISORDER [None]
  - DROOLING [None]
  - LABILE BLOOD PRESSURE [None]
